FAERS Safety Report 4393202-4 (Version None)
Quarter: 2004Q3

REPORT INFORMATION
  Report Type: 
  Country: None (occurrence: None)
  Receive Date: 20040701
  Receipt Date: 20040622
  Transmission Date: 20050211
  Serious: Yes (Life-Threatening, Hospitalization, Disabling)
  Sender: FDA-Public Use
  Company Number: 2004UW12434

PATIENT
  Age: 79 Year
  Sex: Male
  Weight: 58 kg

DRUGS (6)
  1. IRESSA [Suspect]
     Indication: NON-SMALL CELL LUNG CANCER
     Dosage: 250 MG QD PO
     Route: 048
     Dates: start: 20040309, end: 20040622
  2. MADOPAR [Suspect]
     Indication: PARKINSON'S DISEASE
     Dosage: 200 MG/50 MG
  3. TRIMESTAL [Suspect]
     Indication: PARKINSON'S DISEASE
     Dosage: 150 MG PO
     Route: 048
  4. DOMPERIDONE [Concomitant]
  5. OMEPRAZOLE [Concomitant]
  6. CELEBREX [Concomitant]

REACTIONS (2)
  - CEREBRAL ISCHAEMIA [None]
  - CRANIAL NEUROPATHY [None]
